FAERS Safety Report 9714001 (Version 1)
Quarter: 2013Q4

REPORT INFORMATION
  Report Type: Spontaneous
  Country: US (occurrence: US)
  Receive Date: 20131126
  Receipt Date: 20131126
  Transmission Date: 20140711
  Serious: No
  Sender: FDA-Public Use
  Company Number: US-GILEAD-2008-0018498

PATIENT
  Age: 76 Year
  Sex: Male
  Weight: 125.19 kg

DRUGS (8)
  1. LETAIRIS [Suspect]
     Indication: PULMONARY HYPERTENSION
     Route: 048
     Dates: start: 20080605
  2. LOVASTATIN [Concomitant]
  3. WARFARIN [Concomitant]
  4. LISINOPRIL [Concomitant]
  5. DOXAZOSIN [Concomitant]
  6. KLOR-CON M20 [Concomitant]
  7. FUROSEMIDE [Concomitant]
  8. PRIMIDONE [Concomitant]

REACTIONS (1)
  - Oedema [None]
